FAERS Safety Report 24434415 (Version 2)
Quarter: 2024Q4

REPORT INFORMATION
  Report Type: Spontaneous
  Country: US (occurrence: US)
  Receive Date: 20241014
  Receipt Date: 20241022
  Transmission Date: 20250115
  Serious: Yes (Hospitalization, Other)
  Sender: ABBVIE
  Company Number: US-ABBVIE-5961362

PATIENT
  Sex: Male
  Weight: 93 kg

DRUGS (18)
  1. HUMIRA [Suspect]
     Active Substance: ADALIMUMAB
     Indication: Ankylosing spondylitis
     Route: 058
     Dates: start: 2024, end: 202409
  2. HUMIRA [Suspect]
     Active Substance: ADALIMUMAB
     Route: 058
     Dates: start: 20241007
  3. HUMIRA [Suspect]
     Active Substance: ADALIMUMAB
     Route: 058
     Dates: end: 202302
  4. HUMIRA [Suspect]
     Active Substance: ADALIMUMAB
     Dosage: DRUG START DATE: 2010 OR 2011
     Route: 058
  5. VITAMINS [Concomitant]
     Active Substance: VITAMINS
     Indication: Vitamin supplementation
  6. METHOTREXATE [Concomitant]
     Active Substance: METHOTREXATE
     Indication: Ankylosing spondylitis
  7. FAMOTIDINE [Concomitant]
     Active Substance: FAMOTIDINE
     Indication: Gastrooesophageal reflux disease
  8. BENZTROPINE [Concomitant]
     Active Substance: BENZTROPINE
     Indication: Essential tremor
  9. SEROQUEL [Concomitant]
     Active Substance: QUETIAPINE FUMARATE
     Indication: Paranoia
  10. CLARITIN [Concomitant]
     Active Substance: LORATADINE
     Indication: Hypersensitivity
  11. LAMICTAL [Concomitant]
     Active Substance: LAMOTRIGINE
     Indication: Bipolar disorder
     Dosage: 25MG 2X
  12. VITAMIN D3 [Concomitant]
     Active Substance: CHOLECALCIFEROL
     Indication: Vitamin D deficiency
  13. FOLIC ACID [Concomitant]
     Active Substance: FOLIC ACID
     Indication: Product used for unknown indication
  14. ALBUTEROL [Concomitant]
     Active Substance: ALBUTEROL
     Indication: Asthma
  15. LIPITOR [Concomitant]
     Active Substance: ATORVASTATIN CALCIUM
     Indication: Blood cholesterol
  16. CLONIDINE [Concomitant]
     Active Substance: CLONIDINE
     Indication: Bipolar disorder
  17. PRIMIDONE [Concomitant]
     Active Substance: PRIMIDONE
     Indication: Essential tremor
  18. DEPAKOTE [Suspect]
     Active Substance: DIVALPROEX SODIUM
     Indication: Bipolar disorder
     Route: 048

REACTIONS (11)
  - Paranoia [Recovered/Resolved]
  - Post-traumatic stress disorder [Not Recovered/Not Resolved]
  - Sleep deficit [Recovering/Resolving]
  - Paranoia [Recovering/Resolving]
  - Anxiety [Recovered/Resolved]
  - Anxiety [Recovering/Resolving]
  - Fear [Recovering/Resolving]
  - Sleep deficit [Recovered/Resolved]
  - Brain injury [Not Recovered/Not Resolved]
  - Fear [Recovered/Resolved]
  - Foetal alcohol syndrome [Not Recovered/Not Resolved]

NARRATIVE: CASE EVENT DATE: 20120101
